FAERS Safety Report 4608616-4 (Version None)
Quarter: 2005Q1

REPORT INFORMATION
  Report Type: 
  Country: None (occurrence: None)
  Receive Date: 20050315
  Receipt Date: 20041208
  Transmission Date: 20050727
  Serious: Yes (Death)
  Sender: FDA-Public Use
  Company Number: JP-BRISTOL-MYERS SQUIBB COMPANY-12789426

PATIENT
  Sex: Male

DRUGS (4)
  1. TAXOL [Suspect]
     Indication: PROSTATE CANCER
     Route: 041
     Dates: start: 20040608, end: 20040608
  2. PARAPLATIN [Suspect]
     Route: 041
     Dates: start: 20040608, end: 20040608
  3. OXYCONTIN [Suspect]
     Indication: BONE PAIN
     Route: 048
     Dates: start: 20041008
  4. ESTRACYT [Suspect]
     Route: 048
     Dates: start: 20040608, end: 20040615

REACTIONS (4)
  - COLITIS [None]
  - DIARRHOEA [None]
  - GASTROINTESTINAL NECROSIS [None]
  - PYREXIA [None]
